FAERS Safety Report 7422213-7 (Version None)
Quarter: 2011Q2

REPORT INFORMATION
  Report Type: 
  Country: None (occurrence: None)
  Receive Date: 20110418
  Receipt Date: 20110405
  Transmission Date: 20111010
  Serious: Yes (Hospitalization)
  Sender: FDA-Public Use
  Company Number: US-MYLANLABS-2011S1007295

PATIENT
  Age: 50 Year
  Sex: Female

DRUGS (2)
  1. LORAZEPAM [Suspect]
     Indication: INTENTIONAL OVERDOSE
     Route: 048
  2. LABETALOL [Suspect]
     Indication: INTENTIONAL OVERDOSE
     Route: 048

REACTIONS (5)
  - ALTERED STATE OF CONSCIOUSNESS [None]
  - HYPOTENSION [None]
  - INTENTIONAL OVERDOSE [None]
  - BRADYCARDIA [None]
  - HYPOTHERMIA [None]
